FAERS Safety Report 15637101 (Version 1)
Quarter: 2018Q4

REPORT INFORMATION
  Report Type: Spontaneous
  Country: US (occurrence: US)
  Receive Date: 20181120
  Receipt Date: 20181120
  Transmission Date: 20190205
  Serious: No
  Sender: FDA-Public Use
  Company Number: US-009507513-1811USA002095

PATIENT
  Sex: Female

DRUGS (6)
  1. VIVELLE (ESTRADIOL) [Concomitant]
  2. ESTRADIOL. [Concomitant]
     Active Substance: ESTRADIOL
  3. CETROTIDE [Concomitant]
     Active Substance: CETRORELIX ACETATE
  4. LEUPROLIDE [Concomitant]
     Active Substance: LEUPROLIDE
  5. MENOPUR [Concomitant]
     Active Substance: FOLLITROPIN\LUTEINIZING HORMONE
  6. FOLLISTIM [Suspect]
     Active Substance: FOLLITROPIN
     Indication: INFERTILITY FEMALE
     Dosage: 37.5 TO 450 INTERNATIONAL UNITS DAILY
     Route: 058
     Dates: start: 20180823

REACTIONS (1)
  - Headache [Unknown]

NARRATIVE: CASE EVENT DATE: 2018
